FAERS Safety Report 21178498 (Version 1)
Quarter: 2022Q3

REPORT INFORMATION
  Report Type: Spontaneous
  Country: RU (occurrence: RU)
  Receive Date: 20220805
  Receipt Date: 20220805
  Transmission Date: 20221027
  Serious: Yes (Other)
  Sender: FDA-Public Use
  Company Number: RU-AMERICAN REGENT INC-2022002184

PATIENT
  Sex: Female

DRUGS (2)
  1. FERINJECT [Suspect]
     Active Substance: FERRIC CARBOXYMALTOSE
     Indication: Iron deficiency
     Dosage: 500 MG, 1 IN 1 TOTAL
     Route: 042
     Dates: start: 20220712, end: 20220712
  2. COPPER GLUCONATE\FERROUS GLUCONATE\MANGANESE GLUCONATE [Concomitant]
     Active Substance: COPPER GLUCONATE\FERROUS GLUCONATE\MANGANESE GLUCONATE
     Indication: Iron deficiency
     Dosage: 2-4 AMPOULES PER DAY
     Route: 048
     Dates: end: 20220711

REACTIONS (5)
  - Visual impairment [Recovered/Resolved]
  - Asthenia [Recovered/Resolved]
  - Nausea [Recovered/Resolved]
  - Vomiting [Recovered/Resolved]
  - Dizziness [Recovered/Resolved]

NARRATIVE: CASE EVENT DATE: 20220712
